FAERS Safety Report 7138051-9 (Version None)
Quarter: 2010Q4

REPORT INFORMATION
  Report Type: 
  Country: None (occurrence: None)
  Receive Date: 20101104
  Receipt Date: 20100216
  Transmission Date: 20110411
  Serious: Yes (Other)
  Sender: FDA-Public Use
  Company Number: US-WYE-H13642410

PATIENT
  Age: 78 Year
  Sex: Female
  Weight: 95.34 kg

DRUGS (4)
  1. ADVIL COLD AND SINUS [Suspect]
     Indication: NASOPHARYNGITIS
     Dosage: 1 CAPLET X 1, ORAL
     Route: 048
     Dates: start: 20100212, end: 20100212
  2. NORVASC [Concomitant]
  3. COZAAR [Concomitant]
  4. ALBUTEROL [Concomitant]

REACTIONS (2)
  - CONDITION AGGRAVATED [None]
  - HYPERTENSION [None]
